FAERS Safety Report 16369395 (Version 1)
Quarter: 2019Q2

REPORT INFORMATION
  Report Type: Report from Study
  Country: None (occurrence: BR)
  Receive Date: 20190529
  Receipt Date: 20190529
  Transmission Date: 20190711
  Serious: Yes (Disabling, Other)
  Sender: FDA-Public Use
  Company Number: BR-ABBVIE-19K-020-2800023-00

PATIENT
  Sex: Female
  Weight: 78 kg

DRUGS (1)
  1. HUMIRA [Suspect]
     Active Substance: ADALIMUMAB
     Indication: PSORIATIC ARTHROPATHY
     Route: 058
     Dates: start: 20180605, end: 20190513

REACTIONS (5)
  - Joint neoplasm [Recovered/Resolved]
  - Gait disturbance [Unknown]
  - Procedural complication [Unknown]
  - Epicondylitis [Unknown]
  - Skin mass [Unknown]

NARRATIVE: CASE EVENT DATE: 2018
